FAERS Safety Report 4299251-9 (Version None)
Quarter: 2004Q1

REPORT INFORMATION
  Report Type: 
  Country: None (occurrence: None)
  Receive Date: 20040217
  Receipt Date: 20040206
  Transmission Date: 20041129
  Serious: Yes (Other)
  Sender: FDA-Public Use
  Company Number: 2004008321

PATIENT
  Sex: Female

DRUGS (1)
  1. DILANTIN [Suspect]
     Indication: CONVULSION
     Dosage: 600 MG (DAILY), ORAL
     Route: 048
     Dates: start: 19450101

REACTIONS (12)
  - ANTICONVULSANT DRUG LEVEL INCREASED [None]
  - FALL [None]
  - FEELING ABNORMAL [None]
  - GRAND MAL CONVULSION [None]
  - HEAT STROKE [None]
  - HYPERSENSITIVITY [None]
  - NERVOUSNESS [None]
  - PARTIAL SEIZURES [None]
  - PELVIC FRACTURE [None]
  - PHARMACEUTICAL PRODUCT COMPLAINT [None]
  - SPINAL FRACTURE [None]
  - WEIGHT FLUCTUATION [None]
